FAERS Safety Report 6423520-7 (Version None)
Quarter: 2009Q4

REPORT INFORMATION
  Report Type: 
  Country: None (occurrence: None)
  Receive Date: 20091102
  Receipt Date: 20081012
  Transmission Date: 20100525
  Serious: No
  Sender: FDA-Public Use
  Company Number: A0752274A

PATIENT
  Age: 65 Year
  Sex: Female

DRUGS (3)
  1. RYTHMOL SR [Suspect]
     Indication: DRUG USE FOR UNKNOWN INDICATION
     Route: 048
  2. NEBIVOLOL [Concomitant]
  3. CONCURRENT MEDICATIONS [Concomitant]

REACTIONS (2)
  - CARDIAC DISORDER [None]
  - CARDIOVERSION [None]
